FAERS Safety Report 23757546 (Version 1)
Quarter: 2024Q2

REPORT INFORMATION
  Report Type: Spontaneous
  Country: US (occurrence: US)
  Receive Date: 20240418
  Receipt Date: 20240418
  Transmission Date: 20240715
  Serious: Yes (Disabling, Other)
  Sender: FDA-Public Use
  Company Number: US-TARO PHARMACEUTICALS USA INC.-2023TAR00513

PATIENT

DRUGS (1)
  1. FLUOCINONIDE [Suspect]
     Active Substance: FLUOCINONIDE
     Indication: Systemic lupus erythematosus rash
     Dosage: UNK, TOPICAL TO TEMPLES, SMALL AMOUNT AS NEEDED, ONLY USE IT WHEN SHE HAS A LUPUS RASH ON CHEEK
     Route: 061
     Dates: start: 2020, end: 202304

REACTIONS (3)
  - Blindness unilateral [Not Recovered/Not Resolved]
  - Thermal burns of eye [Not Recovered/Not Resolved]
  - Accidental exposure to product [Unknown]

NARRATIVE: CASE EVENT DATE: 20230401
